FAERS Safety Report 4426287-7 (Version None)
Quarter: 2004Q3

REPORT INFORMATION
  Report Type: 
  Country: None (occurrence: None)
  Receive Date: 20040811
  Receipt Date: 20040730
  Transmission Date: 20050211
  Serious: Yes (Hospitalization)
  Sender: FDA-Public Use
  Company Number: 2004-BP-06395RO

PATIENT
  Age: 70 Year
  Sex: Female

DRUGS (8)
  1. METHOTREXATE [Suspect]
     Indication: RHEUMATOID ARTHRITIS
     Dosage: 25 MG IN 5 DAYS (NR), PO
     Route: 048
  2. LEVOTHYROXINE SODIUM [Concomitant]
  3. NIFEDIPINE [Concomitant]
  4. TICLOPIDINE (TICLOPIDINE) [Concomitant]
  5. FERROUS SULFATE WITH FOLIC ACID (HIERROQUICK) [Concomitant]
  6. METHYLPREDNISOLONE [Concomitant]
  7. CALCIUM SALTS (CALCIUM N/A/) [Concomitant]
  8. ALFACALCIDOL (ALFACALCIDOL) [Concomitant]

REACTIONS (8)
  - BLOOD THYROID STIMULATING HORMONE DECREASED [None]
  - CEREBRAL ATROPHY [None]
  - DIARRHOEA [None]
  - PANCYTOPENIA [None]
  - PARKINSONISM [None]
  - RENAL FAILURE ACUTE [None]
  - STOMATITIS [None]
  - TRI-IODOTHYRONINE DECREASED [None]
